FAERS Safety Report 6831363-5 (Version None)
Quarter: 2010Q3

REPORT INFORMATION
  Report Type: 
  Country: None (occurrence: None)
  Receive Date: 20100707
  Receipt Date: 20100624
  Transmission Date: 20110219
  Serious: Yes (Disabling, Other)
  Sender: FDA-Public Use
  Company Number: 232419J09USA

PATIENT
  Age: 41 Year
  Sex: Female

DRUGS (9)
  1. REBIF [Suspect]
     Indication: MULTIPLE SCLEROSIS
     Dosage: 22 MCG, 1 IN 1 WK, SUBCUTANEOUS; 22 MCG, 2 IN 1 WK, SUBCUTANEOUS; 44 MCG, SUBCUTANEOUS; 22 MCG, 3 IN
     Route: 058
     Dates: end: 20080101
  2. REBIF [Suspect]
     Indication: MULTIPLE SCLEROSIS
     Dosage: 22 MCG, 1 IN 1 WK, SUBCUTANEOUS; 22 MCG, 2 IN 1 WK, SUBCUTANEOUS; 44 MCG, SUBCUTANEOUS; 22 MCG, 3 IN
     Route: 058
     Dates: end: 20100601
  3. REBIF [Suspect]
     Indication: MULTIPLE SCLEROSIS
     Dosage: 22 MCG, 1 IN 1 WK, SUBCUTANEOUS; 22 MCG, 2 IN 1 WK, SUBCUTANEOUS; 44 MCG, SUBCUTANEOUS; 22 MCG, 3 IN
     Route: 058
     Dates: start: 20040101
  4. REBIF [Suspect]
     Indication: MULTIPLE SCLEROSIS
     Dosage: 22 MCG, 1 IN 1 WK, SUBCUTANEOUS; 22 MCG, 2 IN 1 WK, SUBCUTANEOUS; 44 MCG, SUBCUTANEOUS; 22 MCG, 3 IN
     Route: 058
     Dates: start: 20080101
  5. STEROIDS (CORTICOSTEROIDS) [Suspect]
     Indication: MULTIPLE SCLEROSIS
     Dates: start: 20040101, end: 20040101
  6. STEROIDS (CORTICOSTEROIDS) [Suspect]
     Indication: MULTIPLE SCLEROSIS
     Dates: start: 20060101, end: 20060101
  7. DILANTIN [Concomitant]
  8. LORAZEPAM [Concomitant]
  9. TYLENOL (COTYLENOL) [Concomitant]

REACTIONS (15)
  - ANAPHYLACTIC REACTION [None]
  - ASTHENIA [None]
  - BLINDNESS [None]
  - CONVULSION [None]
  - DEPRESSION [None]
  - DYSPNOEA [None]
  - FATIGUE [None]
  - HYPOAESTHESIA [None]
  - MUSCLE SPASMS [None]
  - NAUSEA [None]
  - PAIN IN EXTREMITY [None]
  - PERIPHERAL PARALYSIS [None]
  - RESPIRATORY ARREST [None]
  - SOMNOLENCE [None]
  - VISION BLURRED [None]
